FAERS Safety Report 14319535 (Version 3)
Quarter: 2018Q1

REPORT INFORMATION
  Report Type: Report from Study
  Country: None (occurrence: DE)
  Receive Date: 20171222
  Receipt Date: 20180321
  Transmission Date: 20180509
  Serious: Yes (Hospitalization)
  Sender: FDA-Public Use
  Company Number: DE-BAUSCH-BL-2017-035412

PATIENT
  Age: 77 Year
  Sex: Male
  Weight: 78 kg

DRUGS (62)
  1. CARFILZOMIB [Suspect]
     Active Substance: CARFILZOMIB
     Route: 041
     Dates: start: 20161122, end: 20161122
  2. CARFILZOMIB [Suspect]
     Active Substance: CARFILZOMIB
     Route: 041
     Dates: start: 20170424, end: 20170424
  3. CARFILZOMIB [Suspect]
     Active Substance: CARFILZOMIB
     Route: 041
     Dates: start: 20170109, end: 20170109
  4. CARFILZOMIB [Suspect]
     Active Substance: CARFILZOMIB
     Route: 041
     Dates: start: 20170227, end: 20170227
  5. CARFILZOMIB [Suspect]
     Active Substance: CARFILZOMIB
     Route: 041
     Dates: start: 20161115, end: 20161115
  6. CARFILZOMIB [Suspect]
     Active Substance: CARFILZOMIB
     Route: 041
     Dates: start: 20161220, end: 20161220
  7. REVLIMID [Suspect]
     Active Substance: LENALIDOMIDE
     Route: 065
     Dates: start: 20170523, end: 20170612
  8. BUDESONID EASYHALER [Concomitant]
     Active Substance: BUDESONIDE
     Indication: CHRONIC OBSTRUCTIVE PULMONARY DISEASE
  9. CARFILZOMIB [Suspect]
     Active Substance: CARFILZOMIB
     Route: 041
     Dates: start: 20170502, end: 20170502
  10. CARFILZOMIB [Suspect]
     Active Substance: CARFILZOMIB
     Route: 041
     Dates: start: 20170228, end: 20170228
  11. CARFILZOMIB [Suspect]
     Active Substance: CARFILZOMIB
     Route: 041
     Dates: start: 20170214, end: 20170214
  12. CARFILZOMIB [Suspect]
     Active Substance: CARFILZOMIB
     Route: 041
     Dates: start: 20161206, end: 20161206
  13. CARFILZOMIB [Suspect]
     Active Substance: CARFILZOMIB
     Route: 041
     Dates: start: 20170328, end: 20170328
  14. CARFILZOMIB [Suspect]
     Active Substance: CARFILZOMIB
     Route: 041
     Dates: start: 20170103, end: 20170103
  15. REVLIMID [Suspect]
     Active Substance: LENALIDOMIDE
     Route: 065
     Dates: start: 20170227, end: 20170319
  16. CARFILZOMIB [Suspect]
     Active Substance: CARFILZOMIB
     Route: 041
     Dates: start: 20170509, end: 20170509
  17. CARFILZOMIB [Suspect]
     Active Substance: CARFILZOMIB
     Route: 041
     Dates: start: 20161212, end: 20161212
  18. CARFILZOMIB [Suspect]
     Active Substance: CARFILZOMIB
     Route: 041
     Dates: start: 20170524, end: 20170524
  19. CARFILZOMIB [Suspect]
     Active Substance: CARFILZOMIB
     Route: 041
     Dates: start: 20170510, end: 20170510
  20. CARFILZOMIB [Suspect]
     Active Substance: CARFILZOMIB
     Route: 041
     Dates: start: 20161219, end: 20161219
  21. REVLIMID [Suspect]
     Active Substance: LENALIDOMIDE
     Indication: PLASMA CELL MYELOMA
     Route: 065
     Dates: start: 20161108, end: 20161128
  22. REVLIMID [Suspect]
     Active Substance: LENALIDOMIDE
     Route: 065
     Dates: start: 20170424, end: 20170514
  23. CYCLOCAPS SALBUTAMOL [Concomitant]
     Indication: CHRONIC OBSTRUCTIVE PULMONARY DISEASE
     Route: 065
  24. CARFILZOMIB [Suspect]
     Active Substance: CARFILZOMIB
     Route: 041
     Dates: start: 20170102, end: 20170102
  25. CARFILZOMIB [Suspect]
     Active Substance: CARFILZOMIB
     Route: 041
     Dates: start: 20170206, end: 20170206
  26. CARFILZOMIB [Suspect]
     Active Substance: CARFILZOMIB
     Route: 041
     Dates: start: 20170410, end: 20170410
  27. CARFILZOMIB [Suspect]
     Active Substance: CARFILZOMIB
     Route: 041
     Dates: start: 20170207, end: 20170207
  28. REVLIMID [Suspect]
     Active Substance: LENALIDOMIDE
     Route: 065
     Dates: start: 20170130, end: 20170219
  29. PAMIDRONATE [Concomitant]
     Active Substance: PAMIDRONATE DISODIUM
     Indication: PROPHYLAXIS
     Dosage: 60 MG, QMO
     Dates: start: 20150522
  30. ACIC [Concomitant]
     Active Substance: ACYCLOVIR
     Indication: PROPHYLAXIS
     Dates: start: 20161107
  31. AXIGRAN [Concomitant]
     Indication: PROPHYLAXIS
     Dosage: 1 MG, PER CYCLE
     Route: 065
  32. DEXAMETHASONE. [Suspect]
     Active Substance: DEXAMETHASONE
     Indication: PLASMA CELL MYELOMA
     Route: 065
  33. CARFILZOMIB [Suspect]
     Active Substance: CARFILZOMIB
     Route: 041
     Dates: start: 20170306, end: 20170306
  34. CARFILZOMIB [Suspect]
     Active Substance: CARFILZOMIB
     Route: 041
     Dates: start: 20170503, end: 20170503
  35. CARFILZOMIB [Suspect]
     Active Substance: CARFILZOMIB
     Route: 041
     Dates: start: 20170213, end: 20170213
  36. FORMO [Concomitant]
     Indication: CHRONIC OBSTRUCTIVE PULMONARY DISEASE
     Route: 065
  37. CARFILZOMIB [Suspect]
     Active Substance: CARFILZOMIB
     Indication: PLASMA CELL MYELOMA
     Route: 041
     Dates: start: 20170403, end: 20170403
  38. CARFILZOMIB [Suspect]
     Active Substance: CARFILZOMIB
     Route: 041
     Dates: start: 20170307, end: 20170307
  39. CARFILZOMIB [Suspect]
     Active Substance: CARFILZOMIB
     Route: 041
     Dates: start: 20161121, end: 20161121
  40. CARFILZOMIB [Suspect]
     Active Substance: CARFILZOMIB
     Route: 041
     Dates: start: 20170131, end: 20170131
  41. REVLIMID [Suspect]
     Active Substance: LENALIDOMIDE
     Route: 065
     Dates: start: 20170102, end: 20170122
  42. REVLIMID [Suspect]
     Active Substance: LENALIDOMIDE
     Route: 065
     Dates: start: 20161206, end: 20161226
  43. REVLIMID [Suspect]
     Active Substance: LENALIDOMIDE
     Route: 048
  44. PANTOPRAZOL [Concomitant]
     Active Substance: PANTOPRAZOLE SODIUM
     Indication: PROPHYLAXIS
     Route: 065
     Dates: start: 20150401
  45. RANEXA [Concomitant]
     Active Substance: RANOLAZINE
     Indication: CORONARY ARTERY DISEASE
     Route: 065
     Dates: start: 20150401
  46. CARFILZOMIB [Suspect]
     Active Substance: CARFILZOMIB
     Route: 041
     Dates: start: 20170116, end: 20170116
  47. CARFILZOMIB [Suspect]
     Active Substance: CARFILZOMIB
     Route: 041
     Dates: start: 20170425, end: 20170425
  48. CARFILZOMIB [Suspect]
     Active Substance: CARFILZOMIB
     Route: 041
     Dates: start: 20170110, end: 20170110
  49. CARFILZOMIB [Suspect]
     Active Substance: CARFILZOMIB
     Route: 041
     Dates: start: 20170130, end: 20170130
  50. VITAMIN B12 [Concomitant]
     Active Substance: CYANOCOBALAMIN
     Indication: ANAEMIA
     Dosage: 1000 MG IN ONE MONTH
     Route: 065
     Dates: start: 20150101
  51. CLEXANE [Concomitant]
     Active Substance: ENOXAPARIN SODIUM
     Indication: PROPHYLAXIS
     Route: 065
     Dates: start: 20161108
  52. CALCIMED D3 [Concomitant]
     Active Substance: CALCIUM CARBONATE\CHOLECALCIFEROL
     Indication: PROPHYLAXIS
     Dosage: (1000/880 IE) IU, QD (1)
     Route: 065
     Dates: start: 20170110
  53. CARFILZOMIB [Suspect]
     Active Substance: CARFILZOMIB
     Route: 041
     Dates: start: 20161205, end: 20161205
  54. CARFILZOMIB [Suspect]
     Active Substance: CARFILZOMIB
     Route: 041
     Dates: start: 20170327, end: 20170327
  55. CARFILZOMIB [Suspect]
     Active Substance: CARFILZOMIB
     Route: 041
     Dates: start: 20170523, end: 20170523
  56. CARFILZOMIB [Suspect]
     Active Substance: CARFILZOMIB
     Route: 041
     Dates: start: 20161108, end: 20161108
  57. CARFILZOMIB [Suspect]
     Active Substance: CARFILZOMIB
     Route: 041
     Dates: start: 20161114, end: 20161114
  58. CARFILZOMIB [Suspect]
     Active Substance: CARFILZOMIB
     Route: 041
     Dates: start: 20170404, end: 20170404
  59. CARFILZOMIB [Suspect]
     Active Substance: CARFILZOMIB
     Route: 041
     Dates: start: 20161213, end: 20161213
  60. CARFILZOMIB [Suspect]
     Active Substance: CARFILZOMIB
     Route: 041
     Dates: start: 20170411, end: 20170411
  61. CARFILZOMIB [Suspect]
     Active Substance: CARFILZOMIB
     Route: 041
     Dates: start: 20161107, end: 20161107
  62. REVLIMID [Suspect]
     Active Substance: LENALIDOMIDE
     Route: 065
     Dates: start: 20170327, end: 20170416

REACTIONS (4)
  - Bronchitis [Recovered/Resolved]
  - Anaemia [Recovered/Resolved]
  - Pancytopenia [Recovered/Resolved]
  - Pyrexia [Recovered/Resolved]

NARRATIVE: CASE EVENT DATE: 20170218
